FAERS Safety Report 12476498 (Version 2)
Quarter: 2016Q2

REPORT INFORMATION
  Report Type: Spontaneous
  Country: US (occurrence: US)
  Receive Date: 20160617
  Receipt Date: 20160627
  Transmission Date: 20160815
  Serious: Yes (Other)
  Sender: FDA-Public Use
  Company Number: US-TEVA-668847USA

PATIENT
  Age: 41 Year
  Sex: Female

DRUGS (2)
  1. ZECUITY [Suspect]
     Active Substance: SUMATRIPTAN SUCCINATE
     Route: 062
     Dates: start: 20160601, end: 20160601
  2. ZECUITY [Suspect]
     Active Substance: SUMATRIPTAN SUCCINATE
     Route: 062
     Dates: start: 20160605, end: 20160605

REACTIONS (6)
  - Product physical issue [Unknown]
  - Application site erythema [Recovering/Resolving]
  - Application site inflammation [Recovering/Resolving]
  - Application site burn [Recovering/Resolving]
  - Application site pain [Recovered/Resolved]
  - Application site warmth [Recovered/Resolved]

NARRATIVE: CASE EVENT DATE: 20160601
